FAERS Safety Report 7287727-1 (Version None)
Quarter: 2011Q1

REPORT INFORMATION
  Report Type: 
  Country: None (occurrence: None)
  Receive Date: 20110208
  Receipt Date: 20110208
  Transmission Date: 20110831
  Serious: Yes (Other)
  Sender: FDA-Public Use
  Company Number: None

PATIENT
  Age: 53 Year
  Sex: Female
  Weight: 51.7101 kg

DRUGS (1)
  1. ACTONEL [Suspect]
     Indication: OSTEOPENIA
     Dosage: 35 MG ONCE WEEKLY PO
     Route: 048
     Dates: start: 20110109, end: 20110130

REACTIONS (6)
  - DYSSTASIA [None]
  - MUSCULOSKELETAL CHEST PAIN [None]
  - FEELING ABNORMAL [None]
  - ARTHRALGIA [None]
  - MYALGIA [None]
  - CRYING [None]
